FAERS Safety Report 5015850-0 (Version None)
Quarter: 2006Q2

REPORT INFORMATION
  Report Type: 
  Country: None (occurrence: None)
  Receive Date: 20060526
  Receipt Date: 20060511
  Transmission Date: 20061013
  Serious: Yes (Hospitalization)
  Sender: FDA-Public Use
  Company Number: 225319

PATIENT
  Age: 46 Year
  Sex: Female
  Weight: 52 kg

DRUGS (6)
  1. AVASTIN [Suspect]
     Indication: COLON CANCER
     Dosage: 390 MG, Q3W, INTRAVENOUS
     Route: 042
     Dates: start: 20060121, end: 20060502
  2. CAPECITABINE (CAPECITABINE) [Suspect]
     Indication: COLON CANCER
     Dosage: 1500 MG, BID, ORAL; 1150 MG, BID, ORAL
     Route: 048
     Dates: start: 20060121
  3. CAPECITABINE (CAPECITABINE) [Suspect]
     Indication: COLON CANCER
     Dosage: 1500 MG, BID, ORAL; 1150 MG, BID, ORAL
     Route: 048
     Dates: start: 20060411
  4. TROPISETRON (TROPISETRON) [Concomitant]
  5. METOCLOPRAMIDE (METOCLOPRAMIDE HYDROCHLORIDE) [Concomitant]
  6. OXALIPLATIN [Suspect]
     Indication: COLON CANCER
     Dosage: 200 MG, Q2W, INTRAVENOUS
     Dates: start: 20060121

REACTIONS (5)
  - CHEST PAIN [None]
  - DIARRHOEA [None]
  - FIBRIN D DIMER INCREASED [None]
  - HYPERTENSION [None]
  - PALPITATIONS [None]
